FAERS Safety Report 24553353 (Version 1)
Quarter: 2024Q4

REPORT INFORMATION
  Report Type: Spontaneous
  Country: US (occurrence: US)
  Receive Date: 20241028
  Receipt Date: 20241028
  Transmission Date: 20250114
  Serious: Yes (Other)
  Sender: CELLTRION
  Company Number: US-CELLTRION INC.-2024US025183

PATIENT

DRUGS (4)
  1. INFLECTRA [Suspect]
     Active Substance: INFLIXIMAB-DYYB
     Indication: Crohn^s disease
     Dosage: UNK
     Route: 042
     Dates: start: 20241008, end: 20241008
  2. REMICADE [Suspect]
     Active Substance: INFLIXIMAB
     Indication: Crohn^s disease
     Dosage: 3 REMICADE TREATMENTS
  3. REMICADE [Suspect]
     Active Substance: INFLIXIMAB
     Dosage: 3 REMICADE TREATMENTS
  4. REMICADE [Suspect]
     Active Substance: INFLIXIMAB
     Dosage: 3 REMICADE TREATMENTS

REACTIONS (15)
  - Oxygen saturation decreased [Recovered/Resolved]
  - Infusion related hypersensitivity reaction [Recovering/Resolving]
  - Chills [Unknown]
  - Erythema [Not Recovered/Not Resolved]
  - Dyspnoea [Recovered/Resolved]
  - Musculoskeletal stiffness [Not Recovered/Not Resolved]
  - Poor venous access [Unknown]
  - Joint stiffness [Not Recovered/Not Resolved]
  - Weight decreased [Unknown]
  - Infusion site hypoaesthesia [Not Recovered/Not Resolved]
  - Peripheral swelling [Unknown]
  - Arthralgia [Not Recovered/Not Resolved]
  - Nervousness [Unknown]
  - Treatment delayed [Unknown]
  - Product substitution issue [Unknown]

NARRATIVE: CASE EVENT DATE: 20241001
